FAERS Safety Report 7454131-2 (Version None)
Quarter: 2011Q2

REPORT INFORMATION
  Report Type: 
  Country: None (occurrence: None)
  Receive Date: 20110503
  Receipt Date: 20110425
  Transmission Date: 20111010
  Serious: No
  Sender: FDA-Public Use
  Company Number: US-BIOGENIDEC-2010BI038114

PATIENT
  Age: 54 Year
  Sex: Female

DRUGS (2)
  1. BENADRYL [Concomitant]
     Indication: PREMEDICATION
  2. TYSABRI [Suspect]
     Indication: MULTIPLE SCLEROSIS
     Route: 042
     Dates: start: 20101026

REACTIONS (8)
  - MEDICAL DEVICE SITE REACTION [None]
  - ACNE [None]
  - BLOOD IRON DECREASED [None]
  - URTICARIA [None]
  - PRURITUS [None]
  - FATIGUE [None]
  - RASH PRURITIC [None]
  - SENSORY DISTURBANCE [None]
